FAERS Safety Report 6191219-0 (Version None)
Quarter: 2009Q2

REPORT INFORMATION
  Report Type: 
  Country: None (occurrence: None)
  Receive Date: 20090513
  Receipt Date: 20090513
  Transmission Date: 20091009
  Serious: Yes (Death)
  Sender: FDA-Public Use
  Company Number: None

PATIENT
  Age: 54 Year
  Sex: Female
  Weight: 77.1115 kg

DRUGS (4)
  1. DURAGESIC-25 [Suspect]
     Indication: BACK DISORDER
     Dosage: 1 EVERY 72 HRS
  2. DURAGESIC-25 [Suspect]
     Indication: PAIN
     Dosage: 1 EVERY 72 HRS
  3. DURAGESIC-100 [Suspect]
     Indication: BACK DISORDER
     Dosage: 1 EVERY 72 HRS
  4. DURAGESIC-100 [Suspect]
     Indication: PAIN
     Dosage: 1 EVERY 72 HRS

REACTIONS (2)
  - DISORIENTATION [None]
  - SOMNOLENCE [None]
